FAERS Safety Report 5392014-2 (Version None)
Quarter: 2007Q3

REPORT INFORMATION
  Report Type: 
  Country: None (occurrence: None)
  Receive Date: 20070717
  Receipt Date: 20070717
  Transmission Date: 20080115
  Serious: Yes (Hospitalization)
  Sender: FDA-Public Use
  Company Number: None

PATIENT
  Age: 65 Year
  Sex: Male

DRUGS (3)
  1. CISPLATIN [Suspect]
     Dosage: 30MG/M2/WKLY/IV
     Route: 042
     Dates: start: 20070529
  2. ERBITUX [Suspect]
     Dosage: 250MG/M2/WKLY/IV
     Route: 042
     Dates: start: 20070424
  3. RAD. THERAPY [Suspect]
     Dates: start: 20070528

REACTIONS (2)
  - NEUTROPENIA [None]
  - PYREXIA [None]
